FAERS Safety Report 10362651 (Version 4)
Quarter: 2014Q4

REPORT INFORMATION
  Report Type: Spontaneous
  Country: NO (occurrence: NO)
  Receive Date: 20140805
  Receipt Date: 20141022
  Transmission Date: 20150528
  Serious: Yes (Hospitalization)
  Sender: FDA-Public Use
  Company Number: NO-INCYTE CORPORATION-2014IN001792

PATIENT
  Age: 66 Year
  Sex: Male

DRUGS (1)
  1. JAKAFI [Suspect]
     Active Substance: RUXOLITINIB
     Indication: MYELOFIBROSIS
     Dosage: 5 MG X2, UNK
     Route: 048
     Dates: start: 20130820

REACTIONS (3)
  - Gout [Recovering/Resolving]
  - Drug ineffective [Unknown]
  - No therapeutic response [Unknown]

NARRATIVE: CASE EVENT DATE: 2014
